FAERS Safety Report 9610883 (Version 1)
Quarter: 2013Q4

REPORT INFORMATION
  Report Type: Spontaneous
  Country: DK (occurrence: GB)
  Receive Date: 20131009
  Receipt Date: 20131009
  Transmission Date: 20140711
  Serious: Yes (Disabling, Other)
  Sender: FDA-Public Use
  Company Number: GB-FRI-1000049828

PATIENT
  Age: 53 Year
  Sex: Male
  Weight: 77 kg

DRUGS (7)
  1. CITALOPRAM [Suspect]
     Indication: DEPRESSION
     Dosage: 40 MG
     Route: 048
     Dates: start: 20130901, end: 20130922
  2. CITALOPRAM [Suspect]
     Route: 048
     Dates: start: 20130922
  3. CODEINE [Concomitant]
  4. METFORMIN [Concomitant]
  5. PARACETAMOL [Concomitant]
  6. RAMIPRIL [Concomitant]
  7. SIMVASTATIN [Concomitant]

REACTIONS (1)
  - Mood swings [Not Recovered/Not Resolved]
